FAERS Safety Report 7076095-6 (Version None)
Quarter: 2010Q4

REPORT INFORMATION
  Report Type: 
  Country: None (occurrence: None)
  Receive Date: 20101101
  Receipt Date: 20101020
  Transmission Date: 20110411
  Serious: No
  Sender: FDA-Public Use
  Company Number: 2009BI010834

PATIENT
  Sex: Female

DRUGS (14)
  1. TYSABRI [Suspect]
     Indication: MULTIPLE SCLEROSIS
     Route: 042
     Dates: start: 20090226
  2. PROVIGIL [Concomitant]
     Indication: FATIGUE
     Dates: start: 20060101
  3. LYRICA [Concomitant]
     Indication: PARAESTHESIA
     Dates: start: 20080101
  4. BACLOFEN [Concomitant]
     Indication: BACK PAIN
     Dates: start: 20070101
  5. MIRAPEX [Concomitant]
     Indication: RESTLESS LEGS SYNDROME
  6. LISINOPRIL AND HYDROCHLOROTHIAZIDE [Concomitant]
     Indication: HYPERTENSION
     Dates: start: 20010101
  7. DIAZEPAM [Concomitant]
     Indication: NERVOUS SYSTEM DISORDER
     Dates: start: 20080101
  8. VESICARE [Concomitant]
     Indication: URINARY INCONTINENCE
     Dates: start: 20080101
  9. ZANTAC [Concomitant]
     Indication: GASTROOESOPHAGEAL REFLUX DISEASE
     Dates: start: 20080101
  10. CITALOPRAM HYDROBROMIDE [Concomitant]
     Indication: DEPRESSION
     Dates: start: 20090201
  11. NORCO [Concomitant]
     Indication: PAIN
     Dates: start: 20080101
  12. PROMETHAZINE [Concomitant]
     Indication: NAUSEA
     Dates: start: 20080101
  13. ALBUTEROL [Concomitant]
     Indication: ASTHMA
     Dates: start: 19990101
  14. SEROQUEL [Concomitant]
     Indication: INSOMNIA

REACTIONS (8)
  - BACK PAIN [None]
  - DRUG EFFECT DECREASED [None]
  - FEELING ABNORMAL [None]
  - INFLUENZA LIKE ILLNESS [None]
  - INSOMNIA [None]
  - JOINT STIFFNESS [None]
  - LOSS OF CONTROL OF LEGS [None]
  - MUSCLE SPASMS [None]
